FAERS Safety Report 10136516 (Version 1)
Quarter: 2014Q2

REPORT INFORMATION
  Report Type: Spontaneous
  Country: US (occurrence: None)
  Receive Date: 20140428
  Receipt Date: 20140428
  Transmission Date: 20141212
  Serious: No
  Sender: FDA-Public Use
  Company Number: None

PATIENT
  Age: 53 Year
  Sex: Female

DRUGS (2)
  1. RIBAPAK [Suspect]
     Dosage: TAKE 1 TABLET (600 MG) EVERY MORNING AND TAKE 1 TABLET (600 MG) EVERY EVENING.
  2. SOVALDI [Concomitant]

REACTIONS (3)
  - Cough [None]
  - Dyspnoea [None]
  - Middle insomnia [None]
